FAERS Safety Report 10601588 (Version 1)
Quarter: 2014Q4

REPORT INFORMATION
  Report Type: Spontaneous
  Country: US (occurrence: None)
  Receive Date: 20141121
  Receipt Date: 20141121
  Transmission Date: 20150529
  Serious: No
  Sender: FDA-Public Use
  Company Number: None

PATIENT
  Age: 25 Year
  Sex: Male

DRUGS (1)
  1. RISPERIDONE. [Suspect]
     Active Substance: RISPERIDONE
     Indication: SCHIZOPHRENIA
     Dosage: 30 PILLS
     Route: 048
     Dates: start: 20141008, end: 20141103

REACTIONS (2)
  - Condition aggravated [None]
  - Product quality issue [None]

NARRATIVE: CASE EVENT DATE: 201410
